FAERS Safety Report 26123891 (Version 2)
Quarter: 2025Q4

REPORT INFORMATION
  Report Type: Spontaneous
  Country: US (occurrence: US)
  Receive Date: 20251205
  Receipt Date: 20251215
  Transmission Date: 20260118
  Serious: Yes (Hospitalization, Other)
  Sender: CHATTEM
  Company Number: US-MLMSERVICE-20251119-PI718501-00201-1

PATIENT
  Age: 4 Decade
  Sex: Female

DRUGS (1)
  1. LIDOCAINE [Suspect]
     Active Substance: LIDOCAINE
     Indication: Cancer pain
     Route: 061

REACTIONS (1)
  - Local anaesthetic systemic toxicity [Recovered/Resolved]
